FAERS Safety Report 5293296-8 (Version None)
Quarter: 2007Q1

REPORT INFORMATION
  Report Type: 
  Country: None (occurrence: None)
  Receive Date: 20070116
  Receipt Date: 20060216
  Transmission Date: 20070707
  Serious: Yes (Other)
  Sender: FDA-Public Use
  Company Number: HQWYE910021FEB06

PATIENT
  Sex: Female

DRUGS (1)
  1. PREMPRO [Suspect]
     Indication: MENOPAUSAL SYMPTOMS
     Dosage: 0.3MG/1.5MG QD, ORAL
     Route: 048

REACTIONS (4)
  - CONDITION AGGRAVATED [None]
  - DEEP VEIN THROMBOSIS [None]
  - GOUT [None]
  - PULMONARY EMBOLISM [None]
